FAERS Safety Report 23525215 (Version 2)
Quarter: 2024Q1

REPORT INFORMATION
  Report Type: Spontaneous
  Country: US (occurrence: None)
  Receive Date: 20240215
  Receipt Date: 20240317
  Transmission Date: 20240410
  Serious: No
  Sender: FDA-Public Use
  Company Number: 2024A029832

PATIENT
  Sex: Male

DRUGS (1)
  1. FASENRA [Suspect]
     Active Substance: BENRALIZUMAB
     Route: 058

REACTIONS (6)
  - Pruritus [Unknown]
  - Alopecia [Unknown]
  - Hair growth abnormal [Unknown]
  - Peripheral swelling [Unknown]
  - Arthritis [Unknown]
  - Pain in extremity [Unknown]
